FAERS Safety Report 9694691 (Version 1)
Quarter: 2013Q4

REPORT INFORMATION
  Report Type: Spontaneous
  Country: US (occurrence: US)
  Receive Date: 20131119
  Receipt Date: 20131119
  Transmission Date: 20140711
  Serious: Yes (Hospitalization, Other)
  Sender: FDA-Public Use
  Company Number: US-009507513-1311USA005288

PATIENT
  Age: 76 Year
  Sex: Female

DRUGS (1)
  1. PROVENTIL [Suspect]
     Indication: ASTHMA
     Dosage: ^LONG TIME AGO^^AS NEEDED^
     Route: 055

REACTIONS (3)
  - Hip arthroplasty [Unknown]
  - Asthma [Unknown]
  - Product quality issue [Unknown]
